FAERS Safety Report 5089066-6 (Version None)
Quarter: 2006Q3

REPORT INFORMATION
  Report Type: 
  Country: None (occurrence: None)
  Receive Date: 20060822
  Receipt Date: 20060804
  Transmission Date: 20061208
  Serious: Yes (Death, Hospitalization)
  Sender: FDA-Public Use
  Company Number: CA200607003730

PATIENT
  Age: 61 Year
  Sex: Female

DRUGS (4)
  1. FORTEO [Suspect]
     Indication: OSTEOPOROSIS
     Dosage: 20 UG, DAILY (1/D)
     Dates: start: 20060221, end: 20060716
  2. FORTEO [Concomitant]
  3. PERCOCET [Concomitant]
  4. ATIVAN [Concomitant]

REACTIONS (3)
  - BACK PAIN [None]
  - CARDIAC DISORDER [None]
  - LOSS OF CONSCIOUSNESS [None]
